FAERS Safety Report 21716402 (Version 1)
Quarter: 2022Q4

REPORT INFORMATION
  Report Type: Spontaneous
  Country: IN (occurrence: IN)
  Receive Date: 20221212
  Receipt Date: 20221212
  Transmission Date: 20230113
  Serious: Yes (Other)
  Sender: FDA-Public Use
  Company Number: IN-GLAXOSMITHKLINE-IN2022GSK184580

PATIENT

DRUGS (3)
  1. ACITRETIN [Suspect]
     Active Substance: ACITRETIN
     Indication: Ichthyosis
     Dosage: 25 MG
     Route: 048
  2. UNSPECIFIED INGREDIENT [Concomitant]
     Active Substance: UNSPECIFIED INGREDIENT
     Indication: Ichthyosis
     Dosage: UNK
  3. SECUKINUMAB [Concomitant]
     Active Substance: SECUKINUMAB
     Indication: Ichthyosis
     Dosage: 150 MG
     Route: 058

REACTIONS (1)
  - Epiphyses premature fusion [Unknown]
